FAERS Safety Report 7199745-2 (Version None)
Quarter: 2010Q4

REPORT INFORMATION
  Report Type: 
  Country: None (occurrence: None)
  Receive Date: 20101228
  Receipt Date: 20101221
  Transmission Date: 20110411
  Serious: Yes (Hospitalization)
  Sender: FDA-Public Use
  Company Number: PHHY2010IT87033

PATIENT
  Sex: Male

DRUGS (1)
  1. VOLTAREN [Suspect]
     Dosage: 1 POSOLOGIC UNIT
     Route: 030
     Dates: start: 20050101, end: 20050101

REACTIONS (1)
  - SYNCOPE [None]
